FAERS Safety Report 13050692 (Version 1)
Quarter: 2016Q4

REPORT INFORMATION
  Report Type: Spontaneous
  Country: US (occurrence: US)
  Receive Date: 20161221
  Receipt Date: 20161221
  Transmission Date: 20170207
  Serious: Yes (Other)
  Sender: FDA-Public Use
  Company Number: US-PFIZER INC-2016582461

PATIENT
  Age: 55 Year
  Sex: Male

DRUGS (3)
  1. AMPHOJEL /00057401/ [Concomitant]
     Route: 048
  2. VANCOMYCIN HCL [Suspect]
     Active Substance: VANCOMYCIN HYDROCHLORIDE
     Dosage: 1 G, WEEKLY (ON THREE SUCCESSIVE OCCASIONS)
     Route: 042
  3. VANCOMYCIN HCL [Suspect]
     Active Substance: VANCOMYCIN HYDROCHLORIDE
     Indication: CHRONIC KIDNEY DISEASE
     Dosage: 1 G, (OVER 45 MINUTES)
     Route: 042

REACTIONS (4)
  - Leukopenia [Recovering/Resolving]
  - Rash erythematous [Recovered/Resolved]
  - Rash pruritic [Recovered/Resolved]
  - Neutropenia [Recovered/Resolved]
